FAERS Safety Report 9355390 (Version 2)
Quarter: 2013Q3

REPORT INFORMATION
  Report Type: Spontaneous
  Country: JP (occurrence: JP)
  Receive Date: 20130619
  Receipt Date: 20130731
  Transmission Date: 20140515
  Serious: Yes (Life-Threatening)
  Sender: FDA-Public Use
  Company Number: JP-VERTEX PHARMACEUTICALS INC-2013-007182

PATIENT
  Age: 69 Year
  Sex: Female

DRUGS (8)
  1. TELAVIC [Suspect]
     Indication: CHRONIC HEPATITIS C
     Dosage: 2250 MG, QD
     Route: 048
     Dates: start: 20130516, end: 20130519
  2. RIBAVIRIN [Concomitant]
     Dosage: 600 MG, QD
     Route: 048
     Dates: start: 20130516, end: 20130519
  3. PEGINTERFERON ALFA-2B [Concomitant]
     Dosage: 1.5 ?G/KG, QW
     Route: 058
     Dates: start: 20130516, end: 20130519
  4. URSO [Concomitant]
     Dosage: 600 MG, QD
     Route: 048
  5. SOLDEM [Concomitant]
     Dosage: 500 ML, QD
     Route: 041
     Dates: start: 20130517, end: 20130520
  6. PRIMPERAN [Concomitant]
     Dosage: 15 MG, QD
     Route: 048
     Dates: start: 20130518, end: 20130520
  7. MAGMITT [Concomitant]
     Dosage: 330 MG, QD/PRN
     Route: 048
     Dates: start: 20130518
  8. NEXIUM [Concomitant]
     Dosage: 20 MG, QD
     Route: 048
     Dates: start: 20130520

REACTIONS (1)
  - Renal impairment [Recovered/Resolved]
